FAERS Safety Report 10880876 (Version 1)
Quarter: 2015Q1

REPORT INFORMATION
  Report Type: Spontaneous
  Country: JP (occurrence: None)
  Receive Date: 20150225
  Receipt Date: 20150225
  Transmission Date: 20150721
  Serious: Yes (Other)
  Sender: FDA-Public Use
  Company Number: PR 4318

PATIENT
  Age: 52 Year
  Sex: Male
  Weight: 65 kg

DRUGS (2)
  1. AZORGA [Concomitant]
     Active Substance: BRINZOLAMIDE\TIMOLOL MALEATE
  2. COSOPT [Suspect]
     Active Substance: DORZOLAMIDE HYDROCHLORIDE\TIMOLOL MALEATE
     Dates: start: 20150108, end: 20150108

REACTIONS (7)
  - Anterior chamber cell [None]
  - Iridocyclitis [None]
  - Eye irritation [None]
  - Ciliary hyperaemia [None]
  - Intraocular pressure decreased [None]
  - Flat anterior chamber of eye [None]
  - Myopia [None]

NARRATIVE: CASE EVENT DATE: 20150108
